FAERS Safety Report 18512463 (Version 1)
Quarter: 2020Q4

REPORT INFORMATION
  Report Type: Report from Study
  Country: BR (occurrence: BR)
  Receive Date: 20201117
  Receipt Date: 20201117
  Transmission Date: 20210114
  Serious: Yes (Life-Threatening)
  Sender: FDA-Public Use
  Company Number: BR-GILEAD-2020-0490300

PATIENT
  Age: 63 Year
  Sex: Male
  Weight: 76 kg

DRUGS (34)
  1. POTASSIUM PHOSPHATE [POTASSIUM PHOSPHATE DIBASIC;POTASSIUM PHOSPHATE M [Concomitant]
     Indication: HYPOPHOSPHATAEMIA
     Dates: start: 20200801, end: 20200801
  2. QUETIAPINE. [Concomitant]
     Active Substance: QUETIAPINE
     Dates: start: 20200813, end: 20200814
  3. OMEPRAZOLE. [Concomitant]
     Active Substance: OMEPRAZOLE
     Dosage: 20 MG
     Dates: start: 20200814, end: 20200815
  4. PRECEDEX [Concomitant]
     Active Substance: DEXMEDETOMIDINE HYDROCHLORIDE
     Indication: ANXIETY
     Dosage: 100 UG
     Dates: start: 20200729, end: 20200730
  5. LIDOCAINE. [Concomitant]
     Active Substance: LIDOCAINE
     Indication: ENDOTRACHEAL INTUBATION
     Dosage: 20 ML
     Dates: start: 20200730, end: 20200730
  6. LACTATED RINGERS SOLUTION [Concomitant]
     Active Substance: CALCIUM CHLORIDE\POTASSIUM CHLORIDE\SODIUM CHLORIDE\SODIUM LACTATE
     Indication: ACUTE KIDNEY INJURY
     Dosage: 500 ML
     Dates: start: 20200731, end: 20200801
  7. NIPRIDE [Concomitant]
     Active Substance: SODIUM NITROPRUSSIDE
     Dosage: 50 MG
     Dates: start: 20200806, end: 20200806
  8. AZITHROMYCIN ANHYDROUS. [Concomitant]
     Active Substance: AZITHROMYCIN ANHYDROUS
     Dosage: 500 MG
     Dates: start: 20200731, end: 20200803
  9. TAMIFLU [Concomitant]
     Active Substance: OSELTAMIVIR PHOSPHATE
     Indication: ANTIVIRAL PROPHYLAXIS
     Dosage: 75 MG
     Dates: start: 20200729, end: 20200730
  10. ENOXAPARIN [Concomitant]
     Active Substance: ENOXAPARIN
     Indication: THROMBOSIS PROPHYLAXIS
     Dosage: 40 MG
     Dates: start: 20200729, end: 20200730
  11. METHYLPREDNISOLONE. [Concomitant]
     Active Substance: METHYLPREDNISOLONE
     Indication: COVID-19 PNEUMONIA
     Dosage: 40 MG
     Dates: start: 20200730, end: 20200806
  12. METHYLPREDNISOLONE. [Concomitant]
     Active Substance: METHYLPREDNISOLONE
     Dosage: 40 MG
     Dates: start: 20200807, end: 20200810
  13. HYDRALAZINE [Concomitant]
     Active Substance: HYDRALAZINE HYDROCHLORIDE
     Indication: HYPERTENSION
     Dosage: 50 MG
     Dates: start: 20200805, end: 20200806
  14. AZITHROMYCIN ANHYDROUS. [Concomitant]
     Active Substance: AZITHROMYCIN ANHYDROUS
     Indication: ANTIBIOTIC PROPHYLAXIS
     Dosage: 500 MG
     Dates: start: 20200729, end: 20200729
  15. DEXTROKETAMINE [Concomitant]
     Indication: ENDOTRACHEAL INTUBATION
     Dosage: 50 MG
     Dates: start: 20200730, end: 20200730
  16. ENALAPRIL [Concomitant]
     Active Substance: ENALAPRIL
     Indication: HYPERTENSION
     Dosage: 10 MG
     Dates: start: 20200807, end: 20200807
  17. OMEPRAZOLE. [Concomitant]
     Active Substance: OMEPRAZOLE
     Indication: PROPHYLAXIS AGAINST GASTROINTESTINAL ULCER
     Dosage: 40 MG
     Dates: start: 20200729, end: 20200813
  18. PHYSIOLOGICAL SALINE SOLUTION [Concomitant]
     Active Substance: SODIUM CHLORIDE
     Indication: ACUTE KIDNEY INJURY
     Dosage: 500 ML
     Dates: start: 20200731, end: 20200731
  19. NIPRIDE [Concomitant]
     Active Substance: SODIUM NITROPRUSSIDE
     Indication: HYPERTENSION
     Dosage: 50 MG
     Dates: start: 20200804, end: 20200804
  20. REMDESIVIR. [Suspect]
     Active Substance: REMDESIVIR
     Indication: COVID-19 PNEUMONIA
     Dosage: MOST RECENT DOSE OF REMDESIVIR PRIOR TO AE ONSET AT 16:55: 08/AUG/2020
     Route: 042
     Dates: start: 20200730
  21. DIPIRONE [Concomitant]
     Active Substance: METAMIZOLE SODIUM
     Dosage: 1000 MG
     Dates: start: 20200802, end: 20200810
  22. DEXAMETHASONE. [Concomitant]
     Active Substance: DEXAMETHASONE
     Dosage: 2 MG
     Dates: start: 20200815, end: 20200815
  23. QUETIAPINE. [Concomitant]
     Active Substance: QUETIAPINE
     Indication: DELIRIUM
     Dates: start: 20200806, end: 20200810
  24. TOCILIZUMAB. [Suspect]
     Active Substance: TOCILIZUMAB
     Indication: COVID-19 PNEUMONIA
     Dosage: DATE OF MOST RECENT DOSE OF TOCILIZUMAB PRIOR TO AE/SAE ONSET AT 21:30: 30/JUL/2020 100 ML
     Route: 042
     Dates: start: 20200730
  25. CEFTRIAXONE. [Concomitant]
     Active Substance: CEFTRIAXONE
     Indication: ANTIBIOTIC PROPHYLAXIS
     Dates: start: 20200729, end: 20200804
  26. BROMOPRIDE [Concomitant]
     Active Substance: BROMOPRIDE
     Dosage: 10 MG
     Dates: start: 20200729, end: 20200810
  27. DEXAMETHASONE. [Concomitant]
     Active Substance: DEXAMETHASONE
     Indication: COVID-19 PNEUMONIA
     Dosage: 6 MG
     Dates: start: 20200729, end: 20200730
  28. DEXAMETHASONE. [Concomitant]
     Active Substance: DEXAMETHASONE
     Dosage: 4 MG
     Dates: start: 20200811, end: 20200813
  29. ROCURONIUM [Concomitant]
     Active Substance: ROCURONIUM BROMIDE
     Indication: SEDATION
     Dosage: 60 MG
     Dates: start: 20200730, end: 20200730
  30. ROCURONIUM [Concomitant]
     Active Substance: ROCURONIUM BROMIDE
     Dates: start: 20200731, end: 20200802
  31. AMLODIPINE [Concomitant]
     Active Substance: AMLODIPINE BESYLATE
     Indication: HYPERTENSION
     Dosage: 5 MG
     Dates: start: 20200806, end: 20200807
  32. QUETIAPINE. [Concomitant]
     Active Substance: QUETIAPINE
     Dates: start: 20200811, end: 20200812
  33. ENOXAPARIN [Concomitant]
     Active Substance: ENOXAPARIN
     Dosage: 40 MG
     Dates: start: 20200801, end: 20200815
  34. DIPIRONE [Concomitant]
     Active Substance: METAMIZOLE SODIUM
     Dosage: 500 MG
     Dates: start: 20200729, end: 20200801

REACTIONS (1)
  - Bacterial infection [Recovered/Resolved]

NARRATIVE: CASE EVENT DATE: 20200808
